FAERS Safety Report 15723221 (Version 1)
Quarter: 2018Q4

REPORT INFORMATION
  Report Type: Spontaneous
  Country: US (occurrence: US)
  Receive Date: 20181130
  Receipt Date: 20181130
  Transmission Date: 20190205
  Serious: Yes (Hospitalization)
  Sender: FDA-Public Use
  Company Number: None

PATIENT
  Age: 59 Year
  Sex: Female
  Weight: 51.8 kg

DRUGS (11)
  1. HYDROMOPHONE [Concomitant]
  2. ONDANSETRON [Concomitant]
     Active Substance: ONDANSETRON
  3. MELATONIN [Concomitant]
     Active Substance: MELATONIN
  4. COMPAZINE [Concomitant]
     Active Substance: PROCHLORPERAZINE MALEATE
  5. TRAMADOL. [Suspect]
     Active Substance: TRAMADOL
  6. ACETAMINOPHEN. [Concomitant]
     Active Substance: ACETAMINOPHEN
  7. GABAPENTIN. [Concomitant]
     Active Substance: GABAPENTIN
  8. IBUPROFEN. [Concomitant]
     Active Substance: IBUPROFEN
  9. AURANOFIN  6MG [Suspect]
     Active Substance: AURANOFIN
     Indication: OVARIAN CANCER
     Route: 048
     Dates: start: 20181120, end: 20181128
  10. SIROLIMUS 5MG [Suspect]
     Active Substance: SIROLIMUS
     Indication: OVARIAN CANCER
     Route: 048
     Dates: start: 20181120, end: 20181120
  11. SENNA [Concomitant]
     Active Substance: SENNA LEAF\SENNOSIDES\SENNOSIDES A AND B

REACTIONS (6)
  - Therapy cessation [None]
  - Vertebral column mass [None]
  - Headache [None]
  - Vomiting [None]
  - Neck pain [None]
  - Nausea [None]

NARRATIVE: CASE EVENT DATE: 20181127
